FAERS Safety Report 16235099 (Version 1)
Quarter: 2019Q2

REPORT INFORMATION
  Report Type: Report from Study
  Country: GR (occurrence: GR)
  Receive Date: 20190424
  Receipt Date: 20190424
  Transmission Date: 20190711
  Serious: Yes (Hospitalization)
  Sender: FDA-Public Use
  Company Number: GR-SA-2019SA110081

PATIENT
  Age: 72 Year
  Sex: Male

DRUGS (1)
  1. INSULIN GLARGINE [Suspect]
     Active Substance: INSULIN GLARGINE
     Indication: DIABETES MELLITUS
     Dosage: 14 U, QD
     Route: 058
     Dates: start: 20190416

REACTIONS (3)
  - Eye swelling [Unknown]
  - Condition aggravated [Unknown]
  - Inflammation [Unknown]

NARRATIVE: CASE EVENT DATE: 20190417
